FAERS Safety Report 8378584-0 (Version None)
Quarter: 2012Q2

REPORT INFORMATION
  Report Type: 
  Country: None (occurrence: None)
  Receive Date: 20120522
  Receipt Date: 20110623
  Transmission Date: 20120825
  Serious: No
  Sender: FDA-Public Use
  Company Number: US-ASTRAZENECA-2011SE38000

PATIENT
  Age: 87 Year
  Sex: Female

DRUGS (1)
  1. OMEPRAZOLE [Suspect]
     Route: 048

REACTIONS (4)
  - WEIGHT DECREASED [None]
  - BONE DISORDER [None]
  - DYSPHONIA [None]
  - DIZZINESS [None]
